FAERS Safety Report 7816914-6 (Version None)
Quarter: 2011Q4

REPORT INFORMATION
  Report Type: 
  Country: None (occurrence: None)
  Receive Date: 20111017
  Receipt Date: 20111003
  Transmission Date: 20120403
  Serious: Yes (Hospitalization, Other)
  Sender: FDA-Public Use
  Company Number: US-BAYER-201035884NA

PATIENT
  Age: 35 Year
  Sex: Female

DRUGS (4)
  1. CELEBREX [Concomitant]
  2. LEXAPRO [Concomitant]
  3. MULTIVITAMIN PREPARATION + MINERAL SUPPLEMENT [Concomitant]
  4. YASMIN [Suspect]
     Indication: PREMENSTRUAL SYNDROME
     Route: 048
     Dates: start: 20050201, end: 20051110

REACTIONS (7)
  - GALLBLADDER DISORDER [None]
  - CHEST PAIN [None]
  - PULMONARY INFARCTION [None]
  - PULMONARY EMBOLISM [None]
  - CHOLECYSTITIS CHRONIC [None]
  - BILIARY COLIC [None]
  - CHOLESTEROSIS [None]
